FAERS Safety Report 12671060 (Version 1)
Quarter: 2016Q3

REPORT INFORMATION
  Report Type: Spontaneous
  Country: US (occurrence: None)
  Receive Date: 20160819
  Receipt Date: 20160819
  Transmission Date: 20161109
  Serious: Yes (Other)
  Sender: FDA-Public Use
  Company Number: None

PATIENT
  Age: 9 Year
  Sex: Male
  Weight: 30.84 kg

DRUGS (4)
  1. IC DEXMETHYLPHENIDATE ER (SUBSTITUTED FOR FOCALIN XR) [Suspect]
     Active Substance: DEXMETHYLPHENIDATE HYDROCHLORIDE
     Indication: ATTENTION DEFICIT/HYPERACTIVITY DISORDER
     Dosage: 1 PILL BID ORAL
     Route: 048
     Dates: start: 20160803, end: 20160816
  2. MULTIVITAMIN (YUMMY BEARS) [Concomitant]
  3. FOCALIN XR [Concomitant]
     Active Substance: DEXMETHYLPHENIDATE HYDROCHLORIDE
  4. OMEGA 3 FATTY ACID [Concomitant]
     Active Substance: OMEGA-3 FATTY ACIDS

REACTIONS (11)
  - Hyperacusis [None]
  - Product substitution issue [None]
  - Irritability [None]
  - Abnormal behaviour [None]
  - Fear [None]
  - Aggression [None]
  - Paranoia [None]
  - Anxiety [None]
  - Disturbance in attention [None]
  - Memory impairment [None]
  - Crying [None]

NARRATIVE: CASE EVENT DATE: 20160803
